FAERS Safety Report 6593609-0 (Version None)
Quarter: 2010Q1

REPORT INFORMATION
  Report Type: 
  Country: None (occurrence: None)
  Receive Date: 20100222
  Receipt Date: 20090911
  Transmission Date: 20100710
  Serious: No
  Sender: FDA-Public Use
  Company Number: US-BRISTOL-MYERS SQUIBB COMPANY-14757306

PATIENT
  Age: 57 Year
  Sex: Female

DRUGS (9)
  1. ORENCIA [Suspect]
     Indication: RHEUMATOID ARTHRITIS
     Route: 042
     Dates: start: 20070627, end: 20090429
  2. ASPIRIN [Concomitant]
  3. DARVOCET [Concomitant]
  4. FOLIC ACID [Concomitant]
  5. METHOTREXATE [Concomitant]
  6. PRAVACHOL [Concomitant]
  7. PREDNISONE [Concomitant]
  8. ZESTORETIC [Concomitant]
  9. ZIAC [Concomitant]

REACTIONS (1)
  - PSORIASIS [None]
